FAERS Safety Report 6015517-6 (Version None)
Quarter: 2008Q4

REPORT INFORMATION
  Report Type: 
  Country: None (occurrence: None)
  Receive Date: 20081222
  Receipt Date: 20081212
  Transmission Date: 20090506
  Serious: Yes (Other)
  Sender: FDA-Public Use
  Company Number: ES-PFIZER INC-2008153107

PATIENT

DRUGS (2)
  1. SOLU-MODERIN [Suspect]
     Indication: MULTIPLE SCLEROSIS
     Dosage: UNK
  2. DACORTIN [Suspect]

REACTIONS (3)
  - ABNORMAL LOSS OF WEIGHT [None]
  - BEDRIDDEN [None]
  - SKIN STRIAE [None]
